FAERS Safety Report 22388340 (Version 1)
Quarter: 2023Q2

REPORT INFORMATION
  Report Type: Spontaneous
  Country: JP (occurrence: JP)
  Receive Date: 20230531
  Receipt Date: 20230531
  Transmission Date: 20230722
  Serious: Yes (Death, Other)
  Sender: FDA-Public Use
  Company Number: JP-CHUGAI-2023015408

PATIENT
  Age: 71 Year
  Sex: Male
  Weight: 54.1 kg

DRUGS (4)
  1. AVASTIN [Suspect]
     Active Substance: BEVACIZUMAB
     Indication: Hepatocellular carcinoma
     Dosage: 900 MILLIGRAM, ONCE/3WEEKS
     Route: 041
  2. URSO [Concomitant]
     Active Substance: URSODIOL
     Dosage: UNK
     Route: 065
  3. SUCRALFATE [Concomitant]
     Active Substance: SUCRALFATE
     Dosage: 3P
     Route: 048
  4. LASIX [Concomitant]
     Active Substance: FUROSEMIDE
     Dosage: 20 MILLIGRAM
     Route: 065

REACTIONS (3)
  - Oesophageal varices haemorrhage [Fatal]
  - Varices oesophageal [Fatal]
  - Ventricular tachycardia [Unknown]

NARRATIVE: CASE EVENT DATE: 20230322
